FAERS Safety Report 20375685 (Version 1)
Quarter: 2022Q1

REPORT INFORMATION
  Report Type: Spontaneous
  Country: IN (occurrence: IN)
  Receive Date: 20220125
  Receipt Date: 20220125
  Transmission Date: 20220423
  Serious: Yes (Death)
  Sender: FDA-Public Use
  Company Number: IN-PFIZER INC-2019355667

PATIENT
  Age: 62 Year
  Sex: Male

DRUGS (2)
  1. SUTENT [Suspect]
     Active Substance: SUNITINIB MALATE
     Indication: Metastatic renal cell carcinoma
     Dosage: 50 MG, CYCLIC (ONCE DAILY, 2 WEEKS ON AND 1 WEEK OFF)
     Route: 048
     Dates: start: 201908
  2. SUTENT [Suspect]
     Active Substance: SUNITINIB MALATE
     Indication: Gastrointestinal stromal tumour
     Dosage: 37.5 MG (2 WEEKS ON, 1 WEEK OFF)
     Route: 048

REACTIONS (2)
  - Death [Fatal]
  - Chest pain [Unknown]

NARRATIVE: CASE EVENT DATE: 20210102
